FAERS Safety Report 5805498-X (Version None)
Quarter: 2008Q3

REPORT INFORMATION
  Report Type: 
  Country: None (occurrence: None)
  Receive Date: 20080710
  Receipt Date: 20080630
  Transmission Date: 20090109
  Serious: Yes (Hospitalization, Other)
  Sender: FDA-Public Use
  Company Number: US-JNJFOC-20080700159

PATIENT
  Sex: Male
  Weight: 28.12 kg

DRUGS (3)
  1. REMICADE [Suspect]
     Indication: COLITIS ULCERATIVE
     Route: 042
  2. HYDROCHLOROTHIAZIDE [Concomitant]
     Indication: DIABETES INSIPIDUS
     Route: 048
  3. AMILORIDE HYDROCHLORIDE [Concomitant]
     Indication: DIABETES INSIPIDUS
     Route: 048

REACTIONS (1)
  - NEPHROGENIC DIABETES INSIPIDUS [None]
